FAERS Safety Report 19700472 (Version 2)
Quarter: 2021Q3

REPORT INFORMATION
  Report Type: Spontaneous
  Country: US (occurrence: US)
  Receive Date: 20210814
  Receipt Date: 20210825
  Transmission Date: 20211014
  Serious: Yes (Other)
  Sender: FDA-Public Use
  Company Number: US-AMGEN-USASP2021121794

PATIENT
  Age: 44 Year
  Sex: Female
  Weight: 59.9 kg

DRUGS (1)
  1. NEULASTA [Suspect]
     Active Substance: PEGFILGRASTIM
     Indication: NEUTROPENIA
     Dosage: UNK
     Route: 065

REACTIONS (3)
  - Needle issue [Unknown]
  - Drug dose omission by device [Unknown]
  - Neutropenia [Unknown]

NARRATIVE: CASE EVENT DATE: 20210729
